FAERS Safety Report 4270017-9 (Version None)
Quarter: 2004Q1

REPORT INFORMATION
  Report Type: 
  Country: None (occurrence: None)
  Receive Date: 20040114
  Receipt Date: 20020828
  Transmission Date: 20041129
  Serious: No
  Sender: FDA-Public Use
  Company Number: US-GLAXOSMITHKLINE-A0379391A

PATIENT
  Sex: Female

DRUGS (1)
  1. BUPROPRION HCL [Suspect]
     Route: 065

REACTIONS (4)
  - DEPRESSION [None]
  - DRUG INEFFECTIVE [None]
  - LETHARGY [None]
  - WEIGHT INCREASED [None]
